FAERS Safety Report 5123972-9 (Version None)
Quarter: 2006Q4

REPORT INFORMATION
  Report Type: 
  Country: None (occurrence: None)
  Receive Date: 20061010
  Receipt Date: 20060410
  Transmission Date: 20070319
  Serious: Yes (Hospitalization)
  Sender: FDA-Public Use
  Company Number: US-BAYER-200612293BWH

PATIENT
  Age: 70 Year
  Sex: Male
  Weight: 68 kg

DRUGS (14)
  1. NEXAVAR [Suspect]
     Indication: RENAL CELL CARCINOMA STAGE UNSPECIFIED
     Dosage: TOTAL DAILY DOSE: 800 MG  UNIT DOSE: 200 MG
     Route: 048
     Dates: start: 20060215, end: 20060308
  2. DUONEB [Concomitant]
  3. JEVITY [Concomitant]
  4. CARDIZEM [Concomitant]
  5. LASIX [Concomitant]
  6. NEOSPORIN [Concomitant]
  7. FLOMAX [Concomitant]
  8. NYSTATIN [Concomitant]
  9. PEPCID [Concomitant]
  10. VYTORIN [Concomitant]
  11. REGLAN [Concomitant]
  12. ZOLOFT [Concomitant]
  13. APRESOLINE [Concomitant]
  14. AVANDIA [Concomitant]

REACTIONS (1)
  - GASTROINTESTINAL PERFORATION [None]
